FAERS Safety Report 17924964 (Version 2)
Quarter: 2020Q3

REPORT INFORMATION
  Report Type: Spontaneous
  Country: US (occurrence: US)
  Receive Date: 20200622
  Receipt Date: 20200811
  Transmission Date: 20201103
  Serious: Yes (Other)
  Sender: FDA-Public Use
  Company Number: US-PERRIGO-20US008632

PATIENT
  Age: 48 Year
  Sex: Male

DRUGS (5)
  1. PREVACID 24 HR [Suspect]
     Active Substance: LANSOPRAZOLE
     Indication: GASTROOESOPHAGEAL REFLUX DISEASE
     Dosage: 30 MG, QD
     Route: 048
     Dates: start: 20090518, end: 2017
  2. PREVACID [Suspect]
     Active Substance: LANSOPRAZOLE
     Indication: PRODUCT USED FOR UNKNOWN INDICATION
     Dosage: 30 MG, QD
     Route: 065
     Dates: start: 20090725
  3. LANSOPRAZOLE. [Suspect]
     Active Substance: LANSOPRAZOLE
     Indication: GASTROOESOPHAGEAL REFLUX DISEASE
     Dosage: 30 MG, QD
     Route: 065
     Dates: start: 20101026, end: 20161129
  4. NEXIUM [Suspect]
     Active Substance: ESOMEPRAZOLE MAGNESIUM
     Indication: GASTROOESOPHAGEAL REFLUX DISEASE
     Dosage: 40 MG, QD
     Route: 065
     Dates: start: 20060724
  5. PREVACID [Suspect]
     Active Substance: LANSOPRAZOLE
     Indication: GASTROOESOPHAGEAL REFLUX DISEASE
     Dosage: 30 MG, QD
     Route: 065
     Dates: start: 2006, end: 2016

REACTIONS (14)
  - Hyperchlorhydria [Unknown]
  - Acute kidney injury [Not Recovered/Not Resolved]
  - Haematuria [Unknown]
  - Renal impairment [Unknown]
  - Essential hypertension [Unknown]
  - Renal tubular necrosis [Unknown]
  - Renal cyst [Unknown]
  - Chronic kidney disease [Not Recovered/Not Resolved]
  - Renal failure [Unknown]
  - Cardiomyopathy [Unknown]
  - Rebound effect [Unknown]
  - Hyperlipidaemia [Unknown]
  - Urinary retention [Unknown]
  - Nephropathy [Unknown]

NARRATIVE: CASE EVENT DATE: 20131113
